FAERS Safety Report 6750369-8 (Version None)
Quarter: 2010Q2

REPORT INFORMATION
  Report Type: 
  Country: None (occurrence: None)
  Receive Date: 20100527
  Receipt Date: 20100513
  Transmission Date: 20101027
  Serious: Yes (Hospitalization)
  Sender: FDA-Public Use
  Company Number: 2010SP000929

PATIENT
  Age: 78 Year
  Sex: Male

DRUGS (10)
  1. ALVESCO [Suspect]
     Indication: ASTHMA
     Dosage: 160 UG, BID, INHALATION; 160, BID, INHALATION; 160, BID, INHALATION
     Route: 055
     Dates: start: 20100201, end: 20100309
  2. ALVESCO [Suspect]
     Indication: ASTHMA
     Dosage: 160 UG, BID, INHALATION; 160, BID, INHALATION; 160, BID, INHALATION
     Route: 055
     Dates: start: 20100310, end: 20100401
  3. ALVESCO [Suspect]
     Indication: ASTHMA
     Dosage: 160 UG, BID, INHALATION; 160, BID, INHALATION; 160, BID, INHALATION
     Route: 055
     Dates: start: 20100401, end: 20100410
  4. ALVESCO [Suspect]
  5. ALVESCO [Suspect]
  6. DIGOXIN [Concomitant]
  7. FLECAINIDE ACETATE [Concomitant]
  8. PROSCAR [Concomitant]
  9. FORADIL [Concomitant]
  10. PREV MEDS [Concomitant]

REACTIONS (4)
  - AORTIC THROMBOSIS [None]
  - DRUG EFFECT DECREASED [None]
  - DYSPNOEA [None]
  - FATIGUE [None]
